FAERS Safety Report 9246781 (Version 1)
Quarter: 2013Q2

REPORT INFORMATION
  Report Type: Spontaneous
  Country: US (occurrence: US)
  Receive Date: 20130422
  Receipt Date: 20130422
  Transmission Date: 20140414
  Serious: No
  Sender: FDA-Public Use
  Company Number: US-009507513-1304USA010047

PATIENT
  Age: 88 Year
  Sex: Male

DRUGS (1)
  1. JANUMET [Suspect]
     Indication: TYPE 2 DIABETES MELLITUS
     Dosage: 50MG/500MG, FREQUENCY UNSPECIFIED
     Route: 048
     Dates: start: 200906

REACTIONS (2)
  - Dysphagia [Not Recovered/Not Resolved]
  - Wrong technique in drug usage process [Unknown]
